FAERS Safety Report 5254465-6 (Version None)
Quarter: 2007Q1

REPORT INFORMATION
  Report Type: 
  Country: None (occurrence: None)
  Receive Date: 20061201
  Receipt Date: 20060905
  Transmission Date: 20070707
  Serious: No
  Sender: FDA-Public Use
  Company Number: 2006PV020737

PATIENT
  Age: 66 Year
  Sex: Female
  Weight: 79.3795 kg

DRUGS (7)
  1. BYETTA [Suspect]
     Indication: DIABETES MELLITUS NON-INSULIN-DEPENDENT
     Dosage: 10 MCG;BID;SC 5 MCG;BID;SC 5 MCG;QD;SC
     Route: 058
     Dates: start: 20060701, end: 20060830
  2. BYETTA [Suspect]
     Indication: DIABETES MELLITUS NON-INSULIN-DEPENDENT
     Dosage: 10 MCG;BID;SC 5 MCG;BID;SC 5 MCG;QD;SC
     Route: 058
     Dates: start: 20060831
  3. AMARYL [Concomitant]
  4. AVANDIA [Concomitant]
  5. COLESTID [Concomitant]
  6. NIACIN [Concomitant]
  7. FLAXSEED OIL [Concomitant]

REACTIONS (8)
  - BLOOD GLUCOSE ABNORMAL [None]
  - BLOOD GLUCOSE DECREASED [None]
  - COLD SWEAT [None]
  - DYSGEUSIA [None]
  - HYPERHIDROSIS [None]
  - NERVOUSNESS [None]
  - RASH PRURITIC [None]
  - WEIGHT DECREASED [None]
